FAERS Safety Report 24606269 (Version 1)
Quarter: 2024Q4

REPORT INFORMATION
  Report Type: Spontaneous
  Country: US (occurrence: US)
  Receive Date: 20241112
  Receipt Date: 20241112
  Transmission Date: 20250115
  Serious: Yes (Hospitalization, Other)
  Sender: BEIGENE
  Company Number: US-BEIGENE-BGN-2024-017898

PATIENT

DRUGS (1)
  1. BRUKINSA [Suspect]
     Active Substance: ZANUBRUTINIB
     Indication: Waldenstrom^s macroglobulinaemia
     Dosage: UNK
     Dates: start: 2022

REACTIONS (5)
  - Coronary artery occlusion [Unknown]
  - Gastroenteritis listeria [Not Recovered/Not Resolved]
  - Coronary arterial stent insertion [Unknown]
  - Heart valve replacement [Unknown]
  - Asthenia [Not Recovered/Not Resolved]

NARRATIVE: CASE EVENT DATE: 20230601
